FAERS Safety Report 4934110-7 (Version None)
Quarter: 2006Q1

REPORT INFORMATION
  Report Type: 
  Country: None (occurrence: None)
  Receive Date: 20060303
  Receipt Date: 20060223
  Transmission Date: 20060701
  Serious: Yes (Other)
  Sender: FDA-Public Use
  Company Number: 2006027572

PATIENT
  Age: 68 Year
  Sex: Female
  Weight: 58.514 kg

DRUGS (9)
  1. AROMASIN [Suspect]
     Indication: BREAST CANCER
     Dosage: 25 MG (25 MG, DAILY),
     Dates: start: 20050406
  2. VYTORIN [Concomitant]
  3. CELEBREX [Concomitant]
  4. LEVSINEX (HYOSCYAMINE SULFATE) [Concomitant]
  5. ZESTRIL [Concomitant]
  6. ASPIRIN [Concomitant]
  7. CALCIUM (CALCIUM) [Concomitant]
  8. FISH OIL (FISH OIL) [Concomitant]
  9. TAMOXIFEN CITRATE [Concomitant]

REACTIONS (2)
  - MACULOPATHY [None]
  - VISUAL DISTURBANCE [None]
